FAERS Safety Report 13573256 (Version 1)
Quarter: 2017Q2

REPORT INFORMATION
  Report Type: Spontaneous
  Country: GB (occurrence: GB)
  Receive Date: 20170523
  Receipt Date: 20170523
  Transmission Date: 20170830
  Serious: Yes (Disabling, Other)
  Sender: FDA-Public Use
  Company Number: GB-PFIZER INC-2017219292

PATIENT
  Age: 49 Year
  Sex: Female
  Weight: 60 kg

DRUGS (12)
  1. PREMARIN [Concomitant]
     Active Substance: ESTROGENS, CONJUGATED
     Dosage: 1.25 MG, 1X/DAY
     Dates: start: 20170413
  2. DOCUSATE [Concomitant]
     Active Substance: DOCUSATE
     Dosage: UNK (TAKE 1-2 AT NIGHT)
     Dates: start: 20170215
  3. LACTULOSE. [Concomitant]
     Active Substance: LACTULOSE
     Dosage: 15 ML, 2X/DAY
     Dates: start: 20170509
  4. LONGTEC [Concomitant]
     Active Substance: OXYCODONE HYDROCHLORIDE
     Dosage: 40 MG, 2X/DAY
     Dates: start: 20170215, end: 20170303
  5. GABAPENTIN. [Suspect]
     Active Substance: GABAPENTIN
     Dosage: UNK, DAILY (1-3 DAILY)
     Dates: start: 20170215
  6. MORPHINE [Concomitant]
     Active Substance: MORPHINE
     Dosage: 30 MG, 2X/DAY
     Dates: start: 20170328
  7. ORAMORPH [Concomitant]
     Active Substance: MORPHINE SULFATE
     Indication: BREAKTHROUGH PAIN
     Dosage: UNK (5- 10ML EVERY 4 HOURS)
     Dates: start: 20170215
  8. FERROUS FUMARATE [Concomitant]
     Active Substance: FERROUS FUMARATE
     Dosage: 210 MG, 3X/DAY
     Dates: start: 20170227
  9. DULOXETINE. [Concomitant]
     Active Substance: DULOXETINE
     Dosage: 60 MG, 1X/DAY
     Dates: start: 20170215, end: 20170509
  10. FOLIC ACID. [Concomitant]
     Active Substance: FOLIC ACID
     Dosage: 5 MG, 1X/DAY
     Dates: start: 20170227
  11. GABAPENTIN. [Suspect]
     Active Substance: GABAPENTIN
     Dosage: 100 MG, UNK
     Route: 048
  12. DIAZEPAM. [Concomitant]
     Active Substance: DIAZEPAM
     Dosage: 2 MG, AS NEEDED
     Dates: start: 20170215

REACTIONS (1)
  - Loose tooth [Recovering/Resolving]

NARRATIVE: CASE EVENT DATE: 20170414
